FAERS Safety Report 24357362 (Version 2)
Quarter: 2025Q1

REPORT INFORMATION
  Report Type: Spontaneous
  Country: US (occurrence: US)
  Receive Date: 20240924
  Receipt Date: 20250205
  Transmission Date: 20250409
  Serious: Yes (Other)
  Sender: GLAXOSMITHKLINE
  Company Number: US-GLAXOSMITHKLINE-US2023042960

PATIENT

DRUGS (5)
  1. NUCALA [Suspect]
     Active Substance: MEPOLIZUMAB
     Indication: Eosinophilic granulomatosis with polyangiitis
     Dates: start: 2019
  2. NUCALA [Suspect]
     Active Substance: MEPOLIZUMAB
     Indication: Asthma
     Dates: start: 2020, end: 2021
  3. NUCALA [Suspect]
     Active Substance: MEPOLIZUMAB
     Dates: start: 2021
  4. NUCALA [Suspect]
     Active Substance: MEPOLIZUMAB
  5. NUCALA [Suspect]
     Active Substance: MEPOLIZUMAB
     Dosage: 300 MG, MO
     Route: 058
     Dates: start: 2023

REACTIONS (19)
  - Eosinophilic granulomatosis with polyangiitis [Unknown]
  - Atrial fibrillation [Unknown]
  - Abdominal discomfort [Not Recovered/Not Resolved]
  - Abdominal pain upper [Not Recovered/Not Resolved]
  - Back pain [Recovered/Resolved]
  - Fatigue [Recovered/Resolved]
  - Headache [Recovered/Resolved]
  - Heart rate decreased [Unknown]
  - Rash erythematous [Unknown]
  - Rash pruritic [Unknown]
  - Livedo reticularis [Unknown]
  - Skin warm [Unknown]
  - Weight increased [Unknown]
  - Peripheral swelling [Unknown]
  - Breast swelling [Unknown]
  - Injection site scab [Unknown]
  - Injection site discomfort [Unknown]
  - Drug ineffective [Unknown]
  - Product use issue [Unknown]
